FAERS Safety Report 9032529 (Version 3)
Quarter: 2013Q2

REPORT INFORMATION
  Report Type: Spontaneous
  Country: BR (occurrence: BR)
  Receive Date: 20130125
  Receipt Date: 20130411
  Transmission Date: 20140414
  Serious: Yes (Other)
  Sender: FDA-Public Use
  Company Number: PHHY2013BR006766

PATIENT
  Age: 89 Year
  Sex: Female

DRUGS (9)
  1. EXELON [Suspect]
     Indication: DEMENTIA ALZHEIMER^S TYPE
     Dosage: 1.5 MG, BID  (1 TABLET IN THE MORNING AND 1 TABLET AT NIGHT)
     Route: 048
  2. EXELON [Suspect]
     Dosage: 4.5 MG, DAILY (1 TABLET OF 3 MG PLUS 1 TABLET OF 1.5 MG)
     Route: 048
  3. EXELON [Suspect]
     Dosage: 3 MG, DAILY
     Route: 048
  4. EXELON [Suspect]
     Dosage: 3 MG, BID
     Route: 048
     Dates: start: 2012
  5. FRONTAL [Concomitant]
     Indication: SLEEP DISORDER
     Dosage: 0.5 MG, DAILY
     Route: 048
  6. DIGESAN [Concomitant]
     Indication: DYSPEPSIA
     Dosage: 1 DF, DAILY
     Route: 048
  7. PANTOCAL [Concomitant]
     Indication: DYSPEPSIA
     Dosage: 1 DF, DAILY
     Route: 048
  8. TEMARIL [Concomitant]
     Indication: FUNCTIONAL GASTROINTESTINAL DISORDER
     Dosage: 1 DF, (1 TABLET IN THE ALTERNATE, DAY YES, DAY NO)
  9. TYLENOL [Concomitant]
     Indication: SPINAL PAIN
     Dosage: 50 DRP (6 TO 6 HOURS)
     Route: 048
     Dates: start: 20130329

REACTIONS (11)
  - Cerebrovascular accident [Recovering/Resolving]
  - Dysphagia [Recovering/Resolving]
  - Iron deficiency [Recovering/Resolving]
  - Flatulence [Not Recovered/Not Resolved]
  - Convulsion [Not Recovered/Not Resolved]
  - Urinary tract infection [Recovering/Resolving]
  - Hallucination [Recovering/Resolving]
  - Gait disturbance [Recovering/Resolving]
  - Dementia Alzheimer^s type [Not Recovered/Not Resolved]
  - Depression [Recovering/Resolving]
  - Diarrhoea [Recovered/Resolved]
